FAERS Safety Report 9354247 (Version 1)
Quarter: 2013Q2

REPORT INFORMATION
  Report Type: Report from Study
  Country: IT (occurrence: IT)
  Receive Date: 20130618
  Receipt Date: 20130618
  Transmission Date: 20140414
  Serious: Yes (Hospitalization)
  Sender: FDA-Public Use
  Company Number: IT-CELGENEUS-083-22393-13060962

PATIENT
  Sex: Female

DRUGS (1)
  1. ISTODAX [Suspect]
     Indication: MYCOSIS FUNGOIDES
     Route: 041
     Dates: start: 20130114, end: 20130308

REACTIONS (1)
  - Herpes zoster [Unknown]
